FAERS Safety Report 10566499 (Version 1)
Quarter: 2014Q4

REPORT INFORMATION
  Report Type: Spontaneous
  Country: US (occurrence: US)
  Receive Date: 20141105
  Receipt Date: 20141105
  Transmission Date: 20150529
  Serious: Yes (Other)
  Sender: FDA-Public Use
  Company Number: US-PFIZER INC-2014304851

PATIENT
  Age: 13 Year
  Sex: Male
  Weight: 38.5 kg

DRUGS (2)
  1. VFEND [Suspect]
     Active Substance: VORICONAZOLE
     Indication: FUNGAL INFECTION
     Dosage: 100 MG, 2X/DAY
     Dates: start: 20140825, end: 2014
  2. VFEND [Suspect]
     Active Substance: VORICONAZOLE
     Indication: KERATITIS FUNGAL

REACTIONS (2)
  - Petit mal epilepsy [Recovering/Resolving]
  - Hallucination [Recovering/Resolving]

NARRATIVE: CASE EVENT DATE: 20140825
